FAERS Safety Report 8613644-8 (Version None)
Quarter: 2012Q3

REPORT INFORMATION
  Report Type: 
  Country: None (occurrence: None)
  Receive Date: 20120823
  Receipt Date: 20120725
  Transmission Date: 20120928
  Serious: No
  Sender: FDA-Public Use
  Company Number: US-009507513-1207USA011616

PATIENT

DRUGS (10)
  1. ASCORBIC ACID [Concomitant]
     Dosage: 500 MG, QD
  2. PEGASYS [Suspect]
     Dosage: 180 MG, QW
     Route: 058
  3. VITAMINS (UNSPECIFIED) [Concomitant]
     Dosage: 1 DF, QD
  4. VICTRELIS [Suspect]
     Indication: HEPATITIS C
     Dosage: 800 MG DAILY
     Route: 048
     Dates: start: 20120501
  5. RIBASPHERE [Suspect]
     Dosage: 200 MG 3 TABLETS TWICE A DAY
  6. NEUPOGEN [Concomitant]
     Dosage: 300 MG, QW
     Route: 058
  7. LISINOPRIL [Concomitant]
     Dosage: 10 MG, QD
  8. IBUPROFEN [Concomitant]
     Dosage: UNK, PRN
  9. METOPROLOL TARTRATE [Concomitant]
     Dosage: 25 MG, BID
  10. VITAMIN D [Concomitant]
     Dosage: 1000 UNIT, QD

REACTIONS (3)
  - INFLUENZA LIKE ILLNESS [None]
  - DIARRHOEA [None]
  - FATIGUE [None]
